FAERS Safety Report 9365999 (Version 3)
Quarter: 2013Q3

REPORT INFORMATION
  Report Type: Spontaneous
  Country: US (occurrence: US)
  Receive Date: 20130625
  Receipt Date: 20130827
  Transmission Date: 20140515
  Serious: Yes (Other)
  Sender: FDA-Public Use
  Company Number: US-PFIZER INC-2013186205

PATIENT
  Age: 75 Year
  Sex: Male

DRUGS (8)
  1. SUTENT [Suspect]
     Indication: RENAL CELL CARCINOMA
     Dosage: 37.5 MG, CYCLIC (4 M ON, 2 M OFF)
     Route: 048
     Dates: start: 201003
  2. CARDIZEM [Concomitant]
     Dosage: UNK
  3. FINASTERIDE [Concomitant]
     Dosage: UNK
  4. GLIPIZIDE [Concomitant]
     Dosage: UNK
  5. HYDROCHLOROTHIAZIDE [Concomitant]
     Dosage: UNK
  6. LISINOPRIL [Concomitant]
     Dosage: UNK
  7. METOPROLOL TARTRATE [Concomitant]
     Dosage: UNK
  8. NEXIUM [Concomitant]
     Dosage: UNK

REACTIONS (3)
  - Renal impairment [Unknown]
  - Blood creatinine increased [Recovered/Resolved]
  - Blood calcium increased [Recovered/Resolved]
